FAERS Safety Report 18664766 (Version 1)
Quarter: 2020Q4

REPORT INFORMATION
  Report Type: Spontaneous
  Country: US (occurrence: US)
  Receive Date: 20201225
  Receipt Date: 20201225
  Transmission Date: 20210114
  Serious: No
  Sender: FDA-Public Use
  Company Number: US-ASTELLAS-2020US039988

PATIENT
  Age: 67 Year
  Sex: Female

DRUGS (2)
  1. PADCEV [Suspect]
     Active Substance: ENFORTUMAB VEDOTIN-EJFV
     Indication: METASTATIC CARCINOMA OF THE BLADDER
     Dosage: 1.25 MG/KG, D 1, 8, 15 OF 28 DAY CYCLE
     Route: 042
     Dates: start: 20200731, end: 20200928
  2. PADCEV [Suspect]
     Active Substance: ENFORTUMAB VEDOTIN-EJFV
     Dosage: REDUCED DOSE, D 1, 8, 15 OF 28 DAY CYCLE
     Route: 042
     Dates: start: 20201012

REACTIONS (1)
  - Colitis [Recovered/Resolved]

NARRATIVE: CASE EVENT DATE: 20200917
